FAERS Safety Report 4632384-3 (Version None)
Quarter: 2005Q2

REPORT INFORMATION
  Report Type: 
  Country: None (occurrence: None)
  Receive Date: 20050411
  Receipt Date: 20050404
  Transmission Date: 20051028
  Serious: Yes (Other)
  Sender: FDA-Public Use
  Company Number: BE-GLAXOSMITHKLINE-B0376776A

PATIENT
  Age: 31 Year
  Sex: Female

DRUGS (1)
  1. AMOXICILLIN [Suspect]
     Dosage: 500MG PER DAY
     Route: 048

REACTIONS (13)
  - ANAPHYLACTIC SHOCK [None]
  - ANGIONEUROTIC OEDEMA [None]
  - BLINDNESS [None]
  - HYPOKALAEMIA [None]
  - HYPOPERFUSION [None]
  - HYPOTENSION [None]
  - ILL-DEFINED DISORDER [None]
  - ISCHAEMIA [None]
  - RASH MACULO-PAPULAR [None]
  - SKIN LESION [None]
  - SWELLING FACE [None]
  - VISUAL DISTURBANCE [None]
  - VISUAL FIELD DEFECT [None]
